FAERS Safety Report 18786748 (Version 1)
Quarter: 2021Q1

REPORT INFORMATION
  Report Type: Spontaneous
  Country: US (occurrence: US)
  Receive Date: 20210125
  Receipt Date: 20210125
  Transmission Date: 20210419
  Serious: Yes (Death)
  Sender: FDA-Public Use
  Company Number: None

PATIENT
  Age: 66 Year
  Sex: Male

DRUGS (16)
  1. PROPRANOLOL [Concomitant]
     Active Substance: PROPRANOLOL HYDROCHLORIDE
  2. FLECAINIDE [Concomitant]
     Active Substance: FLECAINIDE
  3. SIMVASTATIN. [Concomitant]
     Active Substance: SIMVASTATIN
  4. CELEBREX [Concomitant]
     Active Substance: CELECOXIB
  5. AIRDUO [Concomitant]
  6. LISINOPROL [Concomitant]
     Active Substance: LISINOPRIL
  7. AMLODIPINE [Concomitant]
     Active Substance: AMLODIPINE BESYLATE
  8. TYLENOL [Concomitant]
     Active Substance: ACETAMINOPHEN
  9. DUONEB [Concomitant]
     Active Substance: ALBUTEROL SULFATE\IPRATROPIUM BROMIDE
  10. ASPIRIN. [Concomitant]
     Active Substance: ASPIRIN
  11. RESPICLICK [Concomitant]
  12. ALBUTEROL. [Concomitant]
     Active Substance: ALBUTEROL
  13. ESBRIET [Suspect]
     Active Substance: PIRFENIDONE
     Indication: IDIOPATHIC PULMONARY FIBROSIS
     Route: 048
     Dates: start: 20200312
  14. PANTOPRAZOLE [Concomitant]
     Active Substance: PANTOPRAZOLE
  15. TUMS [Concomitant]
     Active Substance: CALCIUM CARBONATE
  16. WARFARIN [Concomitant]
     Active Substance: WARFARIN

REACTIONS (1)
  - Death [None]

NARRATIVE: CASE EVENT DATE: 20210122
